FAERS Safety Report 10847089 (Version 3)
Quarter: 2015Q1

REPORT INFORMATION
  Report Type: Spontaneous
  Country: FI (occurrence: FI)
  Receive Date: 20150220
  Receipt Date: 20150326
  Transmission Date: 20150721
  Serious: Yes (Other)
  Sender: FDA-Public Use
  Company Number: PHHY2015FI018193

PATIENT
  Age: 89 Year
  Sex: Male

DRUGS (5)
  1. FINASTERID [Concomitant]
     Indication: PRODUCT USED FOR UNKNOWN INDICATION
     Dosage: 1 DF (5MG), QD
     Route: 065
  2. DIUREX [Concomitant]
     Active Substance: PAMABROM
     Indication: PRODUCT USED FOR UNKNOWN INDICATION
     Dosage: 1 DF (5MG (AMILORIDE HYDROCHLORIDE)/ 50 MG(HYDROCHLOROTHIAZIDE), QD
     Route: 065
  3. PRIMASPAN [Concomitant]
     Indication: PRODUCT USED FOR UNKNOWN INDICATION
     Dosage: 1 DF (100 MG), QD
     Route: 065
  4. DIFORMIN RETARD [Concomitant]
     Active Substance: METFORMIN HYDROCHLORIDE
     Indication: PRODUCT USED FOR UNKNOWN INDICATION
     Dosage: 500 MG, 1 TABLET QD
     Route: 065
  5. LESCOL [Suspect]
     Active Substance: FLUVASTATIN SODIUM
     Indication: BLOOD CHOLESTEROL INCREASED
     Dosage: 80 MG, QD (ONCE A DAY)
     Route: 065
     Dates: start: 201412, end: 201412

REACTIONS (3)
  - Respiratory distress [Recovered/Resolved]
  - Feeling abnormal [Recovered/Resolved]
  - Breath odour [Recovered/Resolved]

NARRATIVE: CASE EVENT DATE: 201412
